FAERS Safety Report 5466334-7 (Version None)
Quarter: 2007Q3

REPORT INFORMATION
  Report Type: 
  Country: None (occurrence: None)
  Receive Date: 20070920
  Receipt Date: 20070524
  Transmission Date: 20080115
  Serious: Yes (Death)
  Sender: FDA-Public Use
  Company Number: MC200700424

PATIENT
  Age: 83 Year
  Sex: Male
  Weight: 68 kg

DRUGS (2)
  1. ANGIOMAX [Suspect]
     Dosage: 10.5 MG, BOLUS, IV BOLUS, 25 MG, HR, INTRAVENOUS
     Route: 040
     Dates: start: 20070216, end: 20070216
  2. ANGIOMAX [Suspect]
     Dosage: 10.5 MG, BOLUS, IV BOLUS, 25 MG, HR, INTRAVENOUS
     Route: 040
     Dates: start: 20070216, end: 20070216

REACTIONS (3)
  - BRADYCARDIA [None]
  - CARDIO-RESPIRATORY ARREST [None]
  - PROCEDURAL HYPOTENSION [None]
